FAERS Safety Report 16816110 (Version 1)
Quarter: 2019Q3

REPORT INFORMATION
  Report Type: Spontaneous
  Country: US (occurrence: US)
  Receive Date: 20190917
  Receipt Date: 20190917
  Transmission Date: 20191005
  Serious: Yes (Other)
  Sender: FDA-Public Use
  Company Number: PHEH2019US037521

PATIENT
  Age: 80 Year
  Sex: Male
  Weight: 70.31 kg

DRUGS (3)
  1. TIMOLOL. [Concomitant]
     Active Substance: TIMOLOL
     Indication: GLAUCOMA
     Dosage: 1 DRP, BID (BOTH EYES)
     Route: 065
     Dates: start: 201812
  2. BRIMONIDINE TARTRATE. [Suspect]
     Active Substance: BRIMONIDINE TARTRATE
     Indication: GLAUCOMA
     Dosage: 1 DRP, BID (EACH EYE)
     Route: 047
     Dates: start: 201812, end: 20190815
  3. SLEEPING PILL [Suspect]
     Active Substance: UNSPECIFIED INGREDIENT
     Indication: SOMNOLENCE
     Dosage: UNK
     Route: 065

REACTIONS (11)
  - Macular degeneration [Recovering/Resolving]
  - Herpes zoster [Recovered/Resolved]
  - Weight increased [Recovering/Resolving]
  - Feeling abnormal [Recovering/Resolving]
  - Photosensitivity reaction [Recovering/Resolving]
  - Visual impairment [Recovering/Resolving]
  - Ocular discomfort [Recovering/Resolving]
  - Temperature intolerance [Recovering/Resolving]
  - Night blindness [Recovering/Resolving]
  - Dizziness [Recovered/Resolved]
  - Asthenia [Recovering/Resolving]

NARRATIVE: CASE EVENT DATE: 20190228
